FAERS Safety Report 9465334 (Version 1)
Quarter: 2013Q3

REPORT INFORMATION
  Report Type: Report from Study
  Country: DE (occurrence: DE)
  Receive Date: 20130820
  Receipt Date: 20130820
  Transmission Date: 20140515
  Serious: Yes (Hospitalization, Other)
  Sender: FDA-Public Use
  Company Number: DE-ROCHE-1262809

PATIENT
  Sex: Female
  Weight: 70 kg

DRUGS (10)
  1. RANIBIZUMAB [Suspect]
     Indication: AGE-RELATED MACULAR DEGENERATION
     Route: 050
     Dates: start: 20120626
  2. RANIBIZUMAB [Suspect]
     Route: 050
     Dates: start: 20120822
  3. RANIBIZUMAB [Suspect]
     Route: 050
     Dates: start: 20120924
  4. L-THYROXINE [Concomitant]
     Route: 065
     Dates: start: 1990
  5. RAMIPRIL [Concomitant]
     Route: 065
     Dates: start: 2010
  6. HYDROCHLOROTHIAZIDE [Concomitant]
     Route: 065
  7. CEFALEXIN [Concomitant]
     Route: 065
     Dates: end: 2012
  8. SPIRONOLACTONE [Concomitant]
     Route: 065
  9. FUROSEMIDE [Concomitant]
     Route: 065
  10. BISOPROLOL [Concomitant]
     Route: 065
     Dates: end: 2012

REACTIONS (16)
  - Pulmonary embolism [Not Recovered/Not Resolved]
  - General physical health deterioration [Unknown]
  - Erythema [Recovering/Resolving]
  - Right ventricular failure [Recovering/Resolving]
  - Pleural effusion [Recovering/Resolving]
  - Atrial flutter [Recovering/Resolving]
  - Atrial fibrillation [Recovering/Resolving]
  - Bradyarrhythmia [Recovering/Resolving]
  - Anaemia [Recovered/Resolved]
  - Gastrooesophageal reflux disease [Recovering/Resolving]
  - Gastritis [Recovering/Resolving]
  - Post procedural haematoma [Recovered/Resolved]
  - Polyp [Recovering/Resolving]
  - Pulmonary oedema [Unknown]
  - Vomiting [Unknown]
  - Oedema peripheral [Recovering/Resolving]
